FAERS Safety Report 5595745-4 (Version None)
Quarter: 2008Q1

REPORT INFORMATION
  Report Type: 
  Country: None (occurrence: None)
  Receive Date: 20080118
  Receipt Date: 20080114
  Transmission Date: 20080703
  Serious: Yes (Life-Threatening, Hospitalization, Congenital Anomaly)
  Sender: FDA-Public Use
  Company Number: A0699056A

PATIENT
  Age: 4 Day
  Sex: Male

DRUGS (2)
  1. VALTREX [Suspect]
     Indication: GENITAL HERPES
     Route: 048
  2. NO CONCURRENT MEDICATION [Concomitant]

REACTIONS (4)
  - CONGENITAL ABSENCE OF BILE DUCTS [None]
  - DRUG EXPOSURE DURING PREGNANCY [None]
  - HYPERBILIRUBINAEMIA NEONATAL [None]
  - URINARY TRACT INFECTION NEONATAL [None]
